FAERS Safety Report 4465394-X (Version None)
Quarter: 2004Q4

REPORT INFORMATION
  Report Type: 
  Country: None (occurrence: None)
  Receive Date: 20041004
  Receipt Date: 20040923
  Transmission Date: 20050328
  Serious: Yes (Other)
  Sender: FDA-Public Use
  Company Number: US-ROCHE-381727

PATIENT
  Age: 16 Year
  Sex: Male

DRUGS (1)
  1. VALIUM [Suspect]
     Indication: SEDATION
     Route: 042

REACTIONS (2)
  - INJECTION SITE REACTION [None]
  - PHLEBOTHROMBOSIS [None]
